FAERS Safety Report 4604057-4 (Version None)
Quarter: 2005Q1

REPORT INFORMATION
  Report Type: 
  Country: None (occurrence: None)
  Receive Date: 20050308
  Receipt Date: 20050308
  Transmission Date: 20050727
  Serious: Yes (Other)
  Sender: FDA-Public Use
  Company Number: None

PATIENT
  Age: 35 Year
  Sex: Male
  Weight: 73.7095 kg

DRUGS (2)
  1. STRATTERA [Suspect]
     Indication: ATTENTION DEFICIT/HYPERACTIVITY DISORDER
     Dosage: 2 TABLETS   ONCE/DAY   ORAL
     Route: 048
     Dates: start: 20050221, end: 20050304
  2. MULTI-VITAMINS [Concomitant]

REACTIONS (2)
  - ERECTILE DYSFUNCTION [None]
  - SUPRAPUBIC PAIN [None]
